FAERS Safety Report 13152296 (Version 1)
Quarter: 2017Q1

REPORT INFORMATION
  Report Type: Report from Study
  Country: None (occurrence: BR)
  Receive Date: 20170125
  Receipt Date: 20170125
  Transmission Date: 20170428
  Serious: Yes (Other)
  Sender: FDA-Public Use
  Company Number: BR-ABBVIE-17P-020-1852297-00

PATIENT
  Sex: Female
  Weight: 75 kg

DRUGS (3)
  1. DEPAKOTE [Suspect]
     Active Substance: DIVALPROEX SODIUM
     Indication: EPILEPSY
     Dosage: 2000 MILLIGRAM,MORNING/ NIGHT
     Route: 048
     Dates: start: 2005
  2. DEPAKOTE ER [Suspect]
     Active Substance: DIVALPROEX SODIUM
     Indication: PRODUCT USED FOR UNKNOWN INDICATION
     Dosage: 2000 MILLIGRAM, MORNING/ NIGHT
     Route: 048
  3. DEPAKOTE [Suspect]
     Active Substance: DIVALPROEX SODIUM
     Route: 048

REACTIONS (3)
  - Wrong drug administered [Unknown]
  - Drug dispensing error [Unknown]
  - Seizure [Recovered/Resolved]
